FAERS Safety Report 10010874 (Version 1)
Quarter: 2014Q1

REPORT INFORMATION
  Report Type: Spontaneous
  Country: CM (occurrence: None)
  Receive Date: 20140311
  Receipt Date: 20140311
  Transmission Date: 20141002
  Serious: Yes (Hospitalization)
  Sender: FDA-Public Use
  Company Number: 2014P1002001

PATIENT
  Age: 20 Year
  Sex: Male

DRUGS (6)
  1. ALBENDAZOLE [Suspect]
     Indication: FILARIASIS
     Dosage: 1 TABLET
     Dates: start: 20130709
  2. ALBENDAZOLE [Suspect]
     Indication: ONCHOCERCIASIS
     Dosage: 1 TABLET
     Dates: start: 20130709
  3. ALBENDAZOLE [Suspect]
     Indication: FILARIASIS LYMPHATIC
     Dosage: 1 TABLET
     Dates: start: 20130709
  4. IVERMECTIN [Suspect]
     Indication: FILARIASIS LYMPHATIC
     Dosage: 4 TABLET
     Dates: start: 20130709
  5. IVERMECTIN [Suspect]
     Indication: ONCHOCERCIASIS
     Dosage: 4 TABLET
     Dates: start: 20130709
  6. IVERMECTIN [Suspect]
     Dosage: 4 TABLET
     Dates: start: 20130709

REACTIONS (5)
  - Conjunctival haemorrhage [None]
  - Vision blurred [None]
  - Headache [None]
  - Asthenia [None]
  - Gait disturbance [None]
